FAERS Safety Report 19802753 (Version 1)
Quarter: 2021Q3

REPORT INFORMATION
  Report Type: Spontaneous
  Country: US (occurrence: US)
  Receive Date: 20210908
  Receipt Date: 20210908
  Transmission Date: 20211014
  Serious: No
  Sender: FDA-Public Use
  Company Number: US-BAYER-2021-205001

PATIENT
  Sex: Female

DRUGS (3)
  1. MIRENA [Suspect]
     Active Substance: LEVONORGESTREL
     Indication: CONTRACEPTION
     Dosage: 20 ?G, CONT
     Route: 015
     Dates: start: 202101, end: 202105
  2. MIRENA [Suspect]
     Active Substance: LEVONORGESTREL
     Indication: VAGINAL HAEMORRHAGE
  3. MIRENA [Suspect]
     Active Substance: LEVONORGESTREL
     Indication: ABNORMAL UTERINE BLEEDING

REACTIONS (3)
  - Medical device monitoring error [None]
  - Contraindicated device used [None]
  - Device use error [None]
